FAERS Safety Report 7309228-4 (Version None)
Quarter: 2011Q1

REPORT INFORMATION
  Report Type: 
  Country: None (occurrence: None)
  Receive Date: 20110223
  Receipt Date: 20110214
  Transmission Date: 20110831
  Serious: Yes (Hospitalization)
  Sender: FDA-Public Use
  Company Number: BR-ASTRAZENECA-2011SE08701

PATIENT
  Age: 46 Year
  Sex: Female

DRUGS (2)
  1. ATACAND [Suspect]
     Indication: HYPERTENSION
     Route: 048
     Dates: start: 20110210, end: 20110211
  2. HIXIZINE [Concomitant]
     Route: 048
     Dates: start: 20110210

REACTIONS (4)
  - AKATHISIA [None]
  - TREMOR [None]
  - APHONIA [None]
  - DYSPNOEA [None]
